FAERS Safety Report 21146842 (Version 22)
Quarter: 2022Q4

REPORT INFORMATION
  Report Type: Report from Study
  Country: ES (occurrence: None)
  Receive Date: 20220729
  Receipt Date: 20221109
  Transmission Date: 20230112
  Serious: Yes (Hospitalization)
  Sender: FDA-Public Use
  Company Number: ES-Eisai Medical Research-EC-2022-120097

PATIENT
  Age: 62 Year
  Sex: Female
  Weight: 71 kg

DRUGS (12)
  1. LENVATINIB [Suspect]
     Active Substance: LENVATINIB
     Indication: Endometrial cancer
     Route: 048
     Dates: start: 20220301, end: 20220721
  2. LENVATINIB [Suspect]
     Active Substance: LENVATINIB
     Route: 048
     Dates: start: 20220816, end: 20220820
  3. VIBOSTOLIMAB [Suspect]
     Active Substance: VIBOSTOLIMAB
     Indication: Endometrial cancer
     Dosage: VIBOSTOLIMAB (MK-7684) 200 MG (+) PEMBROLIZUMAB (MK-3475) 200 MG COFORMULATION
     Route: 042
     Dates: start: 20220301, end: 20220705
  4. VIBOSTOLIMAB [Suspect]
     Active Substance: VIBOSTOLIMAB
     Dosage: VIBOSTOLIMAB (MK-7684) 200 MG (+) PEMBROLIZUMAB (MK-3475) 200 MG COFORMULATION
     Route: 042
     Dates: start: 20220816, end: 20220816
  5. SIMVASTATIN [Concomitant]
     Active Substance: SIMVASTATIN
     Dates: start: 201101
  6. LEVOTHYROXINE SODIUM [Concomitant]
     Active Substance: LEVOTHYROXINE SODIUM
     Dates: start: 200401
  7. BROMAZEPAM [Concomitant]
     Active Substance: BROMAZEPAM
     Dates: start: 200301
  8. MORPHINE [Concomitant]
     Active Substance: MORPHINE
     Dates: start: 20220302
  9. MORPHINE [Concomitant]
     Active Substance: MORPHINE
     Dates: start: 20220614
  10. ENALAPRIL [Concomitant]
     Active Substance: ENALAPRIL
     Dates: start: 20220614
  11. PEMBROLIZUMAB [Suspect]
     Active Substance: PEMBROLIZUMAB
  12. PEMBROLIZUMAB [Suspect]
     Active Substance: PEMBROLIZUMAB

REACTIONS (2)
  - Encephalopathy [Recovered/Resolved]
  - Pain threshold decreased [Recovered/Resolved]

NARRATIVE: CASE EVENT DATE: 20220718
